FAERS Safety Report 8343363-7 (Version None)
Quarter: 2012Q2

REPORT INFORMATION
  Report Type: 
  Country: None (occurrence: None)
  Receive Date: 20120508
  Receipt Date: 20120426
  Transmission Date: 20120825
  Serious: Yes (Life-Threatening, Hospitalization, Disabling)
  Sender: FDA-Public Use
  Company Number: US-JNJFOC-20120401083

PATIENT
  Sex: Female

DRUGS (8)
  1. CREON [Concomitant]
     Route: 065
  2. NORTRIPTYLINE HCL [Concomitant]
     Route: 065
  3. REMICADE [Suspect]
     Indication: COLITIS ULCERATIVE
     Route: 042
     Dates: start: 20110101
  4. MERCAPTOPURINE [Suspect]
     Indication: COLITIS ULCERATIVE
     Route: 048
  5. ASACOL [Concomitant]
     Route: 065
  6. ESTRADIOL [Concomitant]
     Dosage: 0.2-35MG TO MCG TABLET
     Route: 065
  7. HYDROCODONE BITARTRATE [Concomitant]
     Dosage: 10-325MG
     Route: 065
  8. PANTOPRAZOLE SODIUM [Concomitant]
     Route: 065

REACTIONS (3)
  - PANCREATITIS ACUTE [None]
  - DRUG INEFFECTIVE [None]
  - PSEUDOCYST [None]
